FAERS Safety Report 19952514 (Version 3)
Quarter: 2021Q4

REPORT INFORMATION
  Report Type: Spontaneous
  Country: DE (occurrence: DE)
  Receive Date: 20211013
  Receipt Date: 20211209
  Transmission Date: 20220303
  Serious: No
  Sender: FDA-Public Use
  Company Number: DE-HORMOSAN PHARMA GMBH-2021-19051

PATIENT
  Sex: Female

DRUGS (1)
  1. ETHINYL ESTRADIOL\LEVONORGESTREL [Suspect]
     Active Substance: ETHINYL ESTRADIOL\LEVONORGESTREL
     Indication: Product used for unknown indication
     Dosage: 1 DOSAGE FORM (TABLET), QD
     Route: 048

REACTIONS (1)
  - Faeces soft [Unknown]
